FAERS Safety Report 11776498 (Version 1)
Quarter: 2015Q4

REPORT INFORMATION
  Report Type: Spontaneous
  Country: US (occurrence: None)
  Receive Date: 20151123
  Receipt Date: 20151123
  Transmission Date: 20160304
  Serious: Yes (Life-Threatening, Hospitalization)
  Sender: FDA-Public Use
  Company Number: None

PATIENT
  Age: 38 Year
  Sex: Female
  Weight: 86.18 kg

DRUGS (25)
  1. DULOXETINE. [Concomitant]
     Active Substance: DULOXETINE
  2. FLUDROCORT [Concomitant]
  3. ZOLPIDEM [Concomitant]
     Active Substance: ZOLPIDEM\ZOLPIDEM TARTRATE
  4. OXYCODONE [Concomitant]
     Active Substance: OXYCODONE
  5. LEVEMIR [Concomitant]
     Active Substance: INSULIN DETEMIR
  6. VITAMIN D 3 [Concomitant]
  7. FOLIC ACID. [Concomitant]
     Active Substance: FOLIC ACID
  8. VITAMIN B12 [Concomitant]
     Active Substance: CYANOCOBALAMIN
  9. TRAMADOL. [Concomitant]
     Active Substance: TRAMADOL
  10. NADOLOL. [Concomitant]
     Active Substance: NADOLOL
  11. KLOR-CON [Concomitant]
     Active Substance: POTASSIUM CHLORIDE
  12. PROMETHAZINE [Concomitant]
     Active Substance: PROMETHAZINE\PROMETHAZINE HYDROCHLORIDE
  13. TOPIRAMATE. [Concomitant]
     Active Substance: TOPIRAMATE
  14. LYRICA [Concomitant]
     Active Substance: PREGABALIN
  15. ZINC [Concomitant]
     Active Substance: ZINC\ZINC CHLORIDE
  16. MULTI PLUS OMEGA 3 DHA [Concomitant]
  17. ASA [Concomitant]
     Active Substance: ASPIRIN
  18. VITAMIN D [Concomitant]
     Active Substance: CHOLECALCIFEROL
  19. IRON [Concomitant]
     Active Substance: IRON
  20. SUPER B COMPLEX [Concomitant]
     Active Substance: CYANOCOBALAMIN\DEXPANTHENOL\NIACINAMIDE\PYRIDOXINE HYDROCHLORIDE\RIBOFLAVIN 5^-PHOSPHATE SODIUM\THIAMINE HYDROCHLORIDE\VITAMIN B COMPLEX
  21. HUMALOG [Concomitant]
     Active Substance: INSULIN LISPRO
  22. RITUXAN [Suspect]
     Active Substance: RITUXIMAB
     Indication: SYSTEMIC LUPUS ERYTHEMATOSUS
     Dosage: 1000 MG IV X 2 DAYS TOTAL
     Route: 042
     Dates: start: 20151119, end: 20151119
  23. LEVOTHYROXINE. [Concomitant]
     Active Substance: LEVOTHYROXINE
  24. ONDONESTRON [Concomitant]
  25. ALPRAZALAM [Concomitant]

REACTIONS (3)
  - Fatigue [None]
  - Infusion related reaction [None]
  - Swollen tongue [None]

NARRATIVE: CASE EVENT DATE: 20151119
